FAERS Safety Report 7741432-3 (Version None)
Quarter: 2011Q3

REPORT INFORMATION
  Report Type: 
  Country: None (occurrence: None)
  Receive Date: 20110909
  Receipt Date: 20110831
  Transmission Date: 20111222
  Serious: Yes (Congenital Anomaly)
  Sender: FDA-Public Use
  Company Number: DE-ASTRAZENECA-2011SE52196

PATIENT
  Age: 0 Year
  Sex: Male
  Weight: 4.4 kg

DRUGS (8)
  1. FOLIO [Concomitant]
     Indication: PROPHYLAXIS OF NEURAL TUBE DEFECT
     Dosage: 0.4 [MG/D ]
     Route: 064
  2. ATACAND [Suspect]
     Indication: HYPERTENSION
     Route: 064
  3. PRESINOL [Concomitant]
     Indication: HYPERTENSION
     Route: 064
  4. DICLOFENAC SODIUM [Concomitant]
     Indication: INTERVERTEBRAL DISC DISORDER
     Route: 064
  5. FLUPIRTINE MALEATE [Suspect]
     Indication: INTERVERTEBRAL DISC DISORDER
     Dosage: 1 [TBL./D ]
     Route: 064
  6. OMEPRAZOLE [Concomitant]
     Indication: GASTRITIS PROPHYLAXIS
     Route: 064
  7. SYMBICORT [Concomitant]
     Indication: ASTHMA
     Route: 064
  8. ENOXAPARIN SODIUM [Concomitant]
     Indication: THROMBOSIS PROPHYLAXIS
     Route: 064
     Dates: start: 20100111, end: 20100125

REACTIONS (2)
  - LARGE FOR DATES BABY [None]
  - CONGENITAL CYSTIC KIDNEY DISEASE [None]
